FAERS Safety Report 9454529 (Version 1)
Quarter: 2013Q3

REPORT INFORMATION
  Report Type: Spontaneous
  Country: FR (occurrence: FR)
  Receive Date: 20130812
  Receipt Date: 20130812
  Transmission Date: 20140515
  Serious: Yes (Hospitalization)
  Sender: FDA-Public Use
  Company Number: FR-GLAXOSMITHKLINE-B0913222A

PATIENT
  Age: 66 Year
  Sex: Male

DRUGS (2)
  1. DEROXAT [Suspect]
     Indication: PRODUCT USED FOR UNKNOWN INDICATION
     Route: 048
     Dates: start: 20130611, end: 20130621
  2. INTRONA [Suspect]
     Indication: PRODUCT USED FOR UNKNOWN INDICATION
     Dosage: 40U6 PER DAY
     Route: 042
     Dates: start: 20130617, end: 20130620

REACTIONS (1)
  - Sinus bradycardia [Recovering/Resolving]
